FAERS Safety Report 5296256-6 (Version None)
Quarter: 2007Q2

REPORT INFORMATION
  Report Type: 
  Country: None (occurrence: None)
  Receive Date: 20070413
  Receipt Date: 20070329
  Transmission Date: 20071010
  Serious: Yes (Other)
  Sender: FDA-Public Use
  Company Number: US-AMGEN-KDL213758

PATIENT
  Sex: Female
  Weight: 68.1 kg

DRUGS (29)
  1. ENBREL [Suspect]
     Indication: RHEUMATOID ARTHRITIS
     Route: 058
     Dates: start: 20000201, end: 20070201
  2. METHOTREXATE [Concomitant]
     Dates: start: 20000201
  3. FOLIC ACID [Concomitant]
  4. FLOVENT [Concomitant]
     Route: 055
  5. CLONAZEPAM [Concomitant]
  6. LIPITOR [Concomitant]
  7. FLUOXETINE [Concomitant]
  8. PERCOCET [Concomitant]
  9. NEURONTIN [Concomitant]
  10. PRILOSEC [Concomitant]
  11. TYLENOL [Concomitant]
  12. VITAMIN CAP [Concomitant]
  13. ZINC [Concomitant]
  14. ASCORBIC ACID [Concomitant]
  15. CALCIUM/VITAMINS NOS [Concomitant]
  16. GINGKO BILOBA [Concomitant]
  17. COENZYME Q10 [Concomitant]
  18. GLUCOSAMINE [Concomitant]
  19. CHONDROITIN [Concomitant]
  20. FISH OIL [Concomitant]
  21. VITAMIN B [Concomitant]
  22. ADVAIR DISKUS 100/50 [Concomitant]
     Route: 055
  23. ACIPHEX [Concomitant]
  24. VITAMIN D [Concomitant]
  25. SINGULAIR [Concomitant]
  26. AMOXICILLIN [Concomitant]
  27. ALBUTEROL [Concomitant]
  28. FLAX SEED OIL [Concomitant]
  29. UNSPECIFIED INHALER [Concomitant]

REACTIONS (3)
  - AMNESIA [None]
  - DISTURBANCE IN ATTENTION [None]
  - NERVOUS SYSTEM DISORDER [None]
